FAERS Safety Report 23044354 (Version 5)
Quarter: 2024Q3

REPORT INFORMATION
  Report Type: Spontaneous
  Country: US (occurrence: US)
  Receive Date: 20231009
  Receipt Date: 20240808
  Transmission Date: 20241016
  Serious: No
  Sender: ABBVIE
  Company Number: US-ABBVIE-5438740

PATIENT
  Sex: Female

DRUGS (2)
  1. SYNTHROID [Suspect]
     Active Substance: LEVOTHYROXINE SODIUM
     Indication: Product used for unknown indication
     Route: 048
  2. LEVOTHYROXINE [Suspect]
     Active Substance: LEVOTHYROXINE\LEVOTHYROXINE SODIUM
     Indication: Product used for unknown indication
     Route: 065

REACTIONS (8)
  - General physical condition abnormal [Unknown]
  - Malaise [Unknown]
  - Blood thyroid stimulating hormone increased [Unknown]
  - Alopecia [Unknown]
  - Illness [Unknown]
  - Abdominal pain upper [Unknown]
  - Fatigue [Unknown]
  - Drug ineffective [Unknown]
